FAERS Safety Report 23262316 (Version 1)
Quarter: 2023Q4

REPORT INFORMATION
  Report Type: Report from Study
  Country: CA (occurrence: CA)
  Receive Date: 20231205
  Receipt Date: 20231205
  Transmission Date: 20240109
  Serious: Yes (Death)
  Sender: FDA-Public Use
  Company Number: CA-BEH-2023166060

PATIENT
  Age: 21 Year
  Sex: Male
  Weight: 40 kg

DRUGS (4)
  1. HIZENTRA [Suspect]
     Active Substance: HUMAN IMMUNOGLOBULIN G
     Indication: Primary immunodeficiency syndrome
     Dosage: 5 GRAM, QW
     Route: 065
     Dates: start: 20161104
  2. AZATHIOPRINE [Concomitant]
     Active Substance: AZATHIOPRINE
  3. CALCIUM [Concomitant]
     Active Substance: CALCIUM
  4. CETIRIZINE HYDROCHLORIDE [Concomitant]
     Active Substance: CETIRIZINE HYDROCHLORIDE

REACTIONS (1)
  - Death [Fatal]
